FAERS Safety Report 9026765 (Version 1)
Quarter: 2013Q1

REPORT INFORMATION
  Report Type: Spontaneous
  Country: JP (occurrence: None)
  Receive Date: 20130109
  Receipt Date: 20130109
  Transmission Date: 20140127
  Serious: Yes (Other)
  Sender: FDA-Public Use
  Company Number: SULF20130001

PATIENT
  Age: 56 Year
  Sex: Female

DRUGS (7)
  1. SULFASALAZINE [Suspect]
     Indication: RHEUMATOID ARTHRITIS
     Route: 048
     Dates: start: 20100609, end: 20100726
  2. METHOTREXATE (METHOTREXATE) [Concomitant]
  3. PREDNISOLONE (PREDNISOLONE) [Concomitant]
  4. RIFAMPICIN (RIFAMPICIN) [Concomitant]
  5. ETHAMBUTOL (ETHAMBUTOL) [Concomitant]
  6. LEVOFLOXACIN (LEVOFLOXACIN) [Concomitant]
  7. STREPTOMYCIN (STREPTOMYCIN) [Concomitant]

REACTIONS (4)
  - Drug reaction with eosinophilia and systemic symptoms [None]
  - Alopecia [None]
  - Aspartate aminotransferase increased [None]
  - Alanine aminotransferase increased [None]
